FAERS Safety Report 14394788 (Version 8)
Quarter: 2019Q2

REPORT INFORMATION
  Report Type: Spontaneous
  Country: BE (occurrence: BE)
  Receive Date: 20180116
  Receipt Date: 20190402
  Transmission Date: 20190711
  Serious: Yes (Hospitalization, Other)
  Sender: FDA-Public Use
  Company Number: BE-PFIZER INC-2017526791

PATIENT
  Age: 59 Year
  Sex: Female

DRUGS (10)
  1. CISPLATIN. [Concomitant]
     Active Substance: CISPLATIN
     Indication: LUNG ADENOCARCINOMA
     Dosage: 75 MG/M2, CYCLIC
  2. METOCLOPRAMIDE. [Concomitant]
     Active Substance: METOCLOPRAMIDE
     Indication: SUPPLEMENTATION THERAPY
     Dosage: UNK, AS NEEDED, (IF NEEDED)
  3. METHYLPREDNISOLONE. [Suspect]
     Active Substance: METHYLPREDNISOLONE
     Dosage: 24 MG, 2X/DAY
  4. PEMETREXED. [Concomitant]
     Active Substance: PEMETREXED
     Indication: LUNG ADENOCARCINOMA
     Dosage: 500 MG/ M^2 (MAINTENANCE THERAPY)
  5. ACETYLSALICYLIC ACID [Concomitant]
     Active Substance: ASPIRIN
     Dosage: 80 MG, UNK (CHRONIC }1 YEAR BEFORE PRES)
  6. TRAMADOL. [Concomitant]
     Active Substance: TRAMADOL
     Dosage: 150 MG, UNK (SLOW RELEASE, (CHRONIC }1 YEAR BEFORE PRES)
  7. PARACETAMOL [Concomitant]
     Active Substance: ACETAMINOPHEN
     Indication: HEADACHE
     Dosage: UNK
  8. MIRTAZAPINE. [Concomitant]
     Active Substance: MIRTAZAPINE
     Indication: EPILEPSY
     Dosage: 15 MG, UNK (CHRONIC }1 YEAR BEFORE PRES)
  9. PANTOPRAZOLE [Concomitant]
     Active Substance: PANTOPRAZOLE
     Dosage: 40 MG, UNK (CHRONIC }1 YEAR BEFORE PRES)
  10. LORMETAZEPAM [Concomitant]
     Active Substance: LORMETAZEPAM
     Indication: EPILEPSY
     Dosage: 2.5 MG, UNK

REACTIONS (2)
  - Hypertension [Recovered/Resolved]
  - Leukocytosis [Unknown]
